FAERS Safety Report 10017821 (Version 1)
Quarter: 2014Q1

REPORT INFORMATION
  Report Type: Spontaneous
  Country: US (occurrence: None)
  Receive Date: 20140312
  Receipt Date: 20140312
  Transmission Date: 20141002
  Serious: Yes (Other)
  Sender: FDA-Public Use
  Company Number: UTC-045378

PATIENT
  Age: 59 Year
  Sex: Male

DRUGS (3)
  1. TYVASO [Suspect]
     Indication: PULMONARY ARTERIAL HYPERTENSION
     Dosage: 18-54MCG (4 IN 1 D), INHALATION
     Route: 055
     Dates: start: 20140224
  2. LETAIRIS (AMBRISENTAN) (TABLET) AMBRISENTAN) [Suspect]
     Indication: PRODUCT USED FOR UNKNOWN INDICATION
     Dosage: 10 MG (10 MG, 1 IN 1 D), UNKNOWN
     Dates: start: 201309
  3. SILDENAFIL (UNKNOWN) [Concomitant]

REACTIONS (6)
  - Blood pressure increased [None]
  - Hypertension [None]
  - Chest pain [None]
  - Discomfort [None]
  - Headache [None]
  - Feeling abnormal [None]
